FAERS Safety Report 9788144 (Version 1)
Quarter: 2013Q4

REPORT INFORMATION
  Report Type: Spontaneous
  Country: US (occurrence: None)
  Receive Date: 20131227
  Receipt Date: 20131227
  Transmission Date: 20140711
  Serious: Yes (Hospitalization)
  Sender: FDA-Public Use
  Company Number: None

PATIENT
  Age: 69 Year
  Sex: Female
  Weight: 68 kg

DRUGS (16)
  1. WARFARIN [Suspect]
     Indication: DEEP VEIN THROMBOSIS
     Dosage: RECENT
     Route: 048
  2. PROTONIX [Concomitant]
  3. MVI [Concomitant]
  4. FERROUS SULFATE [Concomitant]
  5. LACTOBACILLUS [Concomitant]
  6. MIRALAX [Concomitant]
  7. PHENERGAN [Concomitant]
  8. ZOFRAN [Concomitant]
  9. RESTORIL [Concomitant]
  10. BACTROBAN [Concomitant]
  11. MMW [Concomitant]
  12. DEEP SEA NS [Concomitant]
  13. MEGACE [Concomitant]
  14. METOPROLOL [Concomitant]
  15. OXYCODON E [Concomitant]
  16. LOIRAZEPAM [Concomitant]

REACTIONS (6)
  - Atrial fibrillation [None]
  - Supraventricular tachycardia [None]
  - Haemorrhagic anaemia [None]
  - Gastrointestinal haemorrhage [None]
  - International normalised ratio increased [None]
  - Malnutrition [None]
